FAERS Safety Report 6736449-1 (Version None)
Quarter: 2010Q2

REPORT INFORMATION
  Report Type: 
  Country: None (occurrence: None)
  Receive Date: 20100521
  Receipt Date: 20100518
  Transmission Date: 20101027
  Serious: Yes (Hospitalization)
  Sender: FDA-Public Use
  Company Number: US-B.I. PHARMACEUTICALS,INC./RIDGEFIELD-2010-BP-04254BP

PATIENT
  Sex: Female

DRUGS (14)
  1. SPIRIVA [Suspect]
     Indication: CHRONIC OBSTRUCTIVE PULMONARY DISEASE
     Dosage: 18 MCG
     Route: 055
     Dates: start: 20060301
  2. JANUVIA [Concomitant]
     Indication: DIABETES MELLITUS
  3. ACTOS [Concomitant]
     Indication: DIABETES MELLITUS
  4. GLIPIZIDE [Concomitant]
     Indication: DIABETES MELLITUS
  5. DILTIAZEM HCL [Concomitant]
     Indication: HYPERTENSION
  6. ATACAND [Concomitant]
     Indication: HYPERTENSION
  7. CRESTOR [Concomitant]
     Indication: BLOOD CHOLESTEROL INCREASED
  8. PRILOSEC [Concomitant]
     Indication: DYSPEPSIA
  9. LEVOTHYROXINE SODIUM [Concomitant]
     Indication: HYPOTHYROIDISM
  10. SINGULAIR [Concomitant]
     Indication: CHRONIC OBSTRUCTIVE PULMONARY DISEASE
     Dates: start: 20060301
  11. ALBUTEROL [Concomitant]
     Indication: CHRONIC OBSTRUCTIVE PULMONARY DISEASE
  12. FISH OIL [Concomitant]
     Indication: PROPHYLAXIS
  13. COQ10 [Concomitant]
     Indication: PROPHYLAXIS
  14. ASPIRIN [Concomitant]
     Indication: PROPHYLAXIS

REACTIONS (4)
  - BLADDER PROLAPSE [None]
  - CHOLECYSTITIS INFECTIVE [None]
  - DEPRESSION [None]
  - VAGINAL CYST [None]
